FAERS Safety Report 5323401-6 (Version None)
Quarter: 2007Q2

REPORT INFORMATION
  Report Type: 
  Country: None (occurrence: None)
  Receive Date: 20070514
  Receipt Date: 20070503
  Transmission Date: 20071010
  Serious: Yes (Other)
  Sender: FDA-Public Use
  Company Number: US-JNJFOC-20070501239

PATIENT
  Age: 19 Year
  Sex: Male

DRUGS (2)
  1. REMICADE [Suspect]
     Indication: CROHN'S DISEASE
     Route: 042
  2. 6-MP [Concomitant]

REACTIONS (3)
  - ECZEMA [None]
  - HAEMATURIA [None]
  - MOLLUSCUM CONTAGIOSUM [None]
